FAERS Safety Report 10219695 (Version 1)
Quarter: 2014Q1

REPORT INFORMATION
  Report Type: Spontaneous
  Country: US (occurrence: None)
  Receive Date: 20140306
  Receipt Date: 20140306
  Transmission Date: 20141002
  Serious: Yes (Other)
  Sender: FDA-Public Use
  Company Number: 163-21880-13101193

PATIENT
  Age: 73 Year
  Sex: Female

DRUGS (7)
  1. REVLIMID (LENALIDOMIDE) (25 MILLIGRAM, CAPSULES) [Suspect]
     Indication: PLASMA CELL MYELOMA
     Route: 048
     Dates: start: 201002, end: 2010
  2. AMLODIPINE BESYLATE (AMLODIPINE BESILATE) [Concomitant]
  3. PROMETHAZINE [Concomitant]
  4. ASPIRIN EC (ACETYLSALICYLIC ACID) [Concomitant]
  5. WARFARIN SODIUM [Concomitant]
  6. LUNESTA [Concomitant]
  7. MVI [Concomitant]

REACTIONS (1)
  - Thrombosis [None]
